FAERS Safety Report 8900765 (Version 12)
Quarter: 2016Q1

REPORT INFORMATION
  Report Type: Report from Study
  Country: CA (occurrence: CA)
  Receive Date: 20121109
  Receipt Date: 20160112
  Transmission Date: 20160526
  Serious: No
  Sender: FDA-Public Use
  Company Number: PHHY2009CA46015

PATIENT
  Age: 53 Year
  Sex: Female
  Weight: 47.62 kg

DRUGS (1)
  1. SANDOSTATIN LAR DEPOT [Suspect]
     Active Substance: OCTREOTIDE ACETATE
     Indication: ACROMEGALY
     Dosage: 20 MG, ONCE A MONTH
     Route: 030
     Dates: start: 20040101

REACTIONS (14)
  - Night sweats [Unknown]
  - Burning sensation [Unknown]
  - Blood pressure diastolic decreased [Unknown]
  - Sensory disturbance [Unknown]
  - Poor quality sleep [Unknown]
  - Injection site mass [Unknown]
  - Injection site mass [Recovered/Resolved]
  - Diarrhoea [Unknown]
  - Myalgia [Unknown]
  - Hyperglycaemia [Unknown]
  - Injection site discomfort [Not Recovered/Not Resolved]
  - Blood pressure increased [Unknown]
  - Hot flush [Unknown]
  - Injection site pain [Not Recovered/Not Resolved]

NARRATIVE: CASE EVENT DATE: 20140304
